FAERS Safety Report 23341664 (Version 1)
Quarter: 2023Q4

REPORT INFORMATION
  Report Type: Spontaneous
  Country: US (occurrence: None)
  Receive Date: 20231226
  Receipt Date: 20231226
  Transmission Date: 20240110
  Serious: Yes (Hospitalization)
  Sender: FDA-Public Use
  Company Number: None

PATIENT
  Age: 74 Year
  Sex: Male
  Weight: 91 kg

DRUGS (1)
  1. DULAGLUTIDE [Suspect]
     Active Substance: DULAGLUTIDE
     Dosage: FREQUENCY : WEEKLY;?
     Route: 058
     Dates: start: 20230808, end: 20231109

REACTIONS (3)
  - Pancreatitis [None]
  - Pancreatic carcinoma [None]
  - Cholelithiasis [None]

NARRATIVE: CASE EVENT DATE: 20231115
